FAERS Safety Report 5741214-8 (Version None)
Quarter: 2008Q2

REPORT INFORMATION
  Report Type: 
  Country: None (occurrence: None)
  Receive Date: 20080514
  Receipt Date: 20080501
  Transmission Date: 20081010
  Serious: Yes (Death)
  Sender: FDA-Public Use
  Company Number: 2008AL003017

PATIENT
  Sex: Female

DRUGS (2)
  1. DIGOXIN [Suspect]
     Dosage: 0.125 MG DAILY PO
     Route: 048
  2. MORPHINE [Concomitant]

REACTIONS (2)
  - OVERDOSE [None]
  - VOMITING PROJECTILE [None]
